FAERS Safety Report 8835535 (Version 1)
Quarter: 2012Q4

REPORT INFORMATION
  Report Type: 
  Country: US (occurrence: US)
  Receive Date: 20121011
  Receipt Date: 20121011
  Transmission Date: 20130627
  Serious: Yes (Other)
  Sender: FDA-Public Use
  Company Number: US-ROCHE-1133810

PATIENT
  Sex: Female

DRUGS (4)
  1. RITUXAN [Suspect]
     Indication: THROMBOCYTOPENIA
     Route: 065
     Dates: start: 20020408
  2. RITUXAN [Suspect]
     Indication: OFF LABEL USE
     Route: 065
     Dates: start: 20020417
  3. RITUXAN [Suspect]
     Route: 065
     Dates: start: 20020424
  4. RITUXAN [Suspect]
     Route: 065
     Dates: start: 20020501

REACTIONS (1)
  - Haematoma [Not Recovered/Not Resolved]
